FAERS Safety Report 7912974-2 (Version None)
Quarter: 2011Q4

REPORT INFORMATION
  Report Type: 
  Country: None (occurrence: None)
  Receive Date: 20111114
  Receipt Date: 20111103
  Transmission Date: 20120403
  Serious: Yes (Hospitalization)
  Sender: FDA-Public Use
  Company Number: US-BAYER-201029713NA

PATIENT
  Age: 36 Year
  Sex: Female
  Weight: 88.435 kg

DRUGS (9)
  1. SERTRALINE HYDROCHLORIDE [Concomitant]
     Indication: DEPRESSION
     Dosage: UNK UNK, QD
     Dates: start: 20070701
  2. DICHLORALPHENAZONE W/ISOMETHEPTENE/PARACETAM. [Concomitant]
     Dosage: UNK
     Dates: start: 20090716
  3. ZOLOFT [Concomitant]
     Dosage: 100 MG, UNK
     Route: 048
  4. PROPRANOLOL [Concomitant]
     Indication: HEART RATE IRREGULAR
     Dosage: 30 MG, UNK
     Route: 048
     Dates: start: 20080901, end: 20091001
  5. VITAMIN D [Concomitant]
     Route: 048
  6. YAZ [Suspect]
     Indication: CONTRACEPTION
     Dosage: UNK
     Dates: start: 20070910, end: 20090901
  7. VERAPAMIL [Concomitant]
     Indication: BLOOD PRESSURE ABNORMAL
  8. NAPROXEN [Concomitant]
     Dosage: 500 MG, UNK
     Route: 048
     Dates: start: 20021101, end: 20090801
  9. HYDROCODONE BITARTRATE AND ACETAMINOPHEN [Concomitant]
     Dosage: UNK
     Dates: start: 20090814

REACTIONS (2)
  - PULMONARY EMBOLISM [None]
  - PLEURISY [None]
